FAERS Safety Report 16175094 (Version 1)
Quarter: 2019Q2

REPORT INFORMATION
  Report Type: Spontaneous
  Country: CH (occurrence: CH)
  Receive Date: 20190409
  Receipt Date: 20190409
  Transmission Date: 20190711
  Serious: Yes (Other)
  Sender: FDA-Public Use
  Company Number: CH-AMGEN-CHESP2019052914

PATIENT

DRUGS (3)
  1. VITAMIN D [ERGOCALCIFEROL] [Concomitant]
     Active Substance: ERGOCALCIFEROL
     Dosage: UNK
  2. CALCIUM [Concomitant]
     Active Substance: CALCIUM
     Dosage: UNK
  3. PROLIA [Suspect]
     Active Substance: DENOSUMAB
     Indication: PROPHYLAXIS
     Route: 065

REACTIONS (8)
  - Cytomegalovirus viraemia [Unknown]
  - Renal graft infection [Unknown]
  - Urosepsis [Unknown]
  - BK virus infection [Unknown]
  - Herpes simplex [Unknown]
  - Influenza [Unknown]
  - Cystitis [Unknown]
  - Off label use [Unknown]
